FAERS Safety Report 10506934 (Version 1)
Quarter: 2014Q4

REPORT INFORMATION
  Report Type: Spontaneous
  Country: US (occurrence: US)
  Receive Date: 20141009
  Receipt Date: 20141009
  Transmission Date: 20150528
  Serious: No
  Sender: FDA-Public Use
  Company Number: US-ELI_LILLY_AND_COMPANY-US201410001774

PATIENT
  Sex: Male

DRUGS (3)
  1. NOVOLIN N [Concomitant]
     Active Substance: INSULIN HUMAN
  2. HUMALOG [Suspect]
     Active Substance: INSULIN LISPRO
     Indication: TYPE 2 DIABETES MELLITUS
     Dosage: UNK
     Route: 065
     Dates: start: 2013
  3. NOVOLIN R [Concomitant]
     Active Substance: INSULIN HUMAN

REACTIONS (4)
  - Weight decreased [Unknown]
  - Medication error [Unknown]
  - Unevaluable event [Unknown]
  - Incorrect product storage [Unknown]
